FAERS Safety Report 14071714 (Version 7)
Quarter: 2020Q3

REPORT INFORMATION
  Report Type: Spontaneous
  Country: US (occurrence: US)
  Receive Date: 20171010
  Receipt Date: 20200907
  Transmission Date: 20201102
  Serious: Yes (Other)
  Sender: FDA-Public Use
  Company Number: US-SA-2017SA152119

PATIENT

DRUGS (9)
  1. DUPIXENT [Suspect]
     Active Substance: DUPILUMAB
     Indication: PSORIASIS
     Dosage: 300 MG,QOW
     Route: 058
     Dates: start: 20170712
  2. TACROLIMUS. [Concomitant]
     Active Substance: TACROLIMUS
     Dosage: UNK
     Route: 065
  3. BENADRYL [Concomitant]
     Active Substance: DIPHENHYDRAMINE HYDROCHLORIDE
     Dosage: UNK UNK,UNK
     Route: 065
  4. HYDROXYZINE [Concomitant]
     Active Substance: HYDROXYZINE HYDROCHLORIDE
     Dosage: UNK
     Route: 065
  5. MOTRIN [Concomitant]
     Active Substance: IBUPROFEN
     Dosage: UNK
     Route: 065
  6. PREDNISOLONE. [Concomitant]
     Active Substance: PREDNISOLONE
     Dosage: UNK
     Route: 065
  7. DUPIXENT [Suspect]
     Active Substance: DUPILUMAB
     Dosage: 300 MG,QOW
     Route: 058
     Dates: start: 20170725
  8. RESTASIS [Concomitant]
     Active Substance: CYCLOSPORINE
     Dosage: UNK
     Route: 065
  9. HYDROXYZINE HYDROCHLORIDE. [Concomitant]
     Active Substance: HYDROXYZINE HYDROCHLORIDE
     Dosage: UNK
     Route: 065

REACTIONS (23)
  - Lymphadenopathy [Unknown]
  - Skin atrophy [Unknown]
  - Eczema [Unknown]
  - Eye inflammation [Unknown]
  - Skin exfoliation [Unknown]
  - Arthralgia [Unknown]
  - Platelet count increased [Unknown]
  - Nasopharyngitis [Unknown]
  - Alopecia [Not Recovered/Not Resolved]
  - Skin wrinkling [Unknown]
  - Erythema [Unknown]
  - Urticaria [Unknown]
  - Periorbital swelling [Unknown]
  - Alopecia [Unknown]
  - Eye discharge [Unknown]
  - Swelling [Unknown]
  - Pruritus [Unknown]
  - Headache [Unknown]
  - Skin exfoliation [Unknown]
  - Periorbital swelling [Unknown]
  - Product use in unapproved indication [Unknown]
  - Thyroid neoplasm [Unknown]
  - Nail disorder [Unknown]

NARRATIVE: CASE EVENT DATE: 2017
